FAERS Safety Report 9892435 (Version 3)
Quarter: 2014Q2

REPORT INFORMATION
  Report Type: Spontaneous
  Country: US (occurrence: US)
  Receive Date: 20140212
  Receipt Date: 20140412
  Transmission Date: 20141212
  Serious: No
  Sender: FDA-Public Use
  Company Number: US-009507513-1401USA014403

PATIENT
  Sex: 0

DRUGS (1)
  1. DULERA [Suspect]
     Dosage: UNK

REACTIONS (1)
  - Hypersensitivity [Unknown]
